FAERS Safety Report 7492058-0 (Version None)
Quarter: 2011Q2

REPORT INFORMATION
  Report Type: 
  Country: None (occurrence: None)
  Receive Date: 20110519
  Receipt Date: 20110505
  Transmission Date: 20111010
  Serious: Yes (Hospitalization)
  Sender: FDA-Public Use
  Company Number: CA-JNJFOC-20100705827

PATIENT
  Sex: Female
  Weight: 82 kg

DRUGS (5)
  1. ATIVAN [Suspect]
     Indication: ILL-DEFINED DISORDER
     Route: 048
  2. HYDROMORPHONE HCL [Suspect]
     Indication: ILL-DEFINED DISORDER
     Route: 065
  3. LYRICA [Suspect]
     Indication: ILL-DEFINED DISORDER
     Route: 065
  4. REMICADE [Suspect]
     Indication: COLITIS ULCERATIVE
     Route: 042
     Dates: start: 20081101
  5. HYDROMORPHONE HCL [Suspect]
     Indication: ILL-DEFINED DISORDER
     Route: 048

REACTIONS (2)
  - DEPRESSED LEVEL OF CONSCIOUSNESS [None]
  - PNEUMONIA ASPIRATION [None]
